FAERS Safety Report 14588271 (Version 1)
Quarter: 2018Q1

REPORT INFORMATION
  Report Type: Spontaneous
  Country: US (occurrence: US)
  Receive Date: 20180301
  Receipt Date: 20180301
  Transmission Date: 20180509
  Serious: No
  Sender: FDA-Public Use
  Company Number: US-PERRIGO-17US025759

PATIENT
  Age: 60 Year
  Sex: Male
  Weight: 90.7 kg

DRUGS (4)
  1. TESTOSTERONE. [Suspect]
     Active Substance: TESTOSTERONE
     Indication: BLOOD TESTOSTERONE DECREASED
     Dosage: 50 MG, QD
     Route: 061
     Dates: start: 201701, end: 201702
  2. TESTOSTERONE. [Suspect]
     Active Substance: TESTOSTERONE
     Dosage: 50 MG, QD
     Route: 061
     Dates: start: 201702, end: 201702
  3. TESTOSTERONE. [Suspect]
     Active Substance: TESTOSTERONE
     Dosage: 50 MG, QD
     Route: 061
     Dates: start: 201703, end: 20170313
  4. TESTOSTERONE. [Suspect]
     Active Substance: TESTOSTERONE
     Dosage: 50 MG, QD
     Route: 061
     Dates: start: 201702, end: 201702

REACTIONS (5)
  - Influenza like illness [Recovered/Resolved]
  - Chills [Recovered/Resolved]
  - Nausea [Recovered/Resolved]
  - Pyrexia [Recovered/Resolved]
  - Fatigue [Recovered/Resolved]

NARRATIVE: CASE EVENT DATE: 20170212
